FAERS Safety Report 4365501-3 (Version None)
Quarter: 2004Q2

REPORT INFORMATION
  Report Type: 
  Country: None (occurrence: None)
  Receive Date: 20040526
  Receipt Date: 20030130
  Transmission Date: 20050107
  Serious: Yes (Hospitalization, Other)
  Sender: FDA-Public Use
  Company Number: US-MERCK-0302USA00123

PATIENT
  Age: 64 Year
  Sex: Female
  Weight: 73 kg

DRUGS (3)
  1. VIOXX [Suspect]
     Indication: RHEUMATOID ARTHRITIS
     Route: 048
  2. VIOXX [Suspect]
     Indication: OSTEOARTHRITIS
     Route: 048
  3. DIOVAN [Concomitant]
     Route: 065
     Dates: end: 20030101

REACTIONS (22)
  - ABASIA [None]
  - ARTHRALGIA [None]
  - ASTHENIA [None]
  - CARDIAC FAILURE CONGESTIVE [None]
  - CEREBROVASCULAR ACCIDENT [None]
  - CHEST PAIN [None]
  - CONGESTIVE CARDIOMYOPATHY [None]
  - DIABETES MELLITUS NON-INSULIN-DEPENDENT [None]
  - DRUG HYPERSENSITIVITY [None]
  - DYSLIPIDAEMIA [None]
  - DYSSTASIA [None]
  - EMOTIONAL DISTRESS [None]
  - FATIGUE [None]
  - INSOMNIA [None]
  - IRRITABLE BOWEL SYNDROME [None]
  - LACTOSE INTOLERANCE [None]
  - MACULAR DEGENERATION [None]
  - PAIN [None]
  - RENAL FAILURE CHRONIC [None]
  - RHEUMATOID ARTHRITIS [None]
  - SKIN CANCER [None]
  - THROMBOSIS [None]
